FAERS Safety Report 21587676 (Version 3)
Quarter: 2023Q2

REPORT INFORMATION
  Report Type: Spontaneous
  Country: US (occurrence: US)
  Receive Date: 20221114
  Receipt Date: 20230418
  Transmission Date: 20230721
  Serious: Yes (Other)
  Sender: FDA-Public Use
  Company Number: US-SUN PHARMACEUTICAL INDUSTRIES LTD-2022R1-363372

PATIENT
  Age: 16 Year
  Sex: Male
  Weight: 88 kg

DRUGS (1)
  1. DEXMEDETOMIDINE [Suspect]
     Active Substance: DEXMEDETOMIDINE
     Indication: Analgesic therapy
     Dosage: UNK/9.1 ML/KG/H (800 ML) TO 14.8 ML/KG/H (1300 ML) FOR 2 H
     Route: 065

REACTIONS (1)
  - Diabetes insipidus [Recovered/Resolved]
